FAERS Safety Report 5510696-9 (Version None)
Quarter: 2007Q4

REPORT INFORMATION
  Report Type: 
  Country: None (occurrence: None)
  Receive Date: 20071107
  Receipt Date: 20071023
  Transmission Date: 20080405
  Serious: Yes (Other)
  Sender: FDA-Public Use
  Company Number: CHPA2007US11554

PATIENT
  Age: 17 Year
  Sex: Female

DRUGS (2)
  1. TRANSDERM SCOP (NCH) (HYOSCINE HYDROBROMIBE) TRANS-THERAPEUTIC-SYSTEM [Suspect]
     Indication: VERTIGO
     Dates: start: 20070901, end: 20071016
  2. ANTIBIOTICS (NO INGREDIENTS/SUBSTANCES) [Concomitant]

REACTIONS (6)
  - ABNORMAL BEHAVIOUR [None]
  - ASTHENIA [None]
  - BLOOD PRESSURE DECREASED [None]
  - BLOOD PRESSURE FLUCTUATION [None]
  - DYSSTASIA [None]
  - FATIGUE [None]
